FAERS Safety Report 4817776-1 (Version None)
Quarter: 2005Q3

REPORT INFORMATION
  Report Type: 
  Country: None (occurrence: None)
  Receive Date: 20050929
  Receipt Date: 20050809
  Transmission Date: 20060218
  Serious: No
  Sender: FDA-Public Use
  Company Number: 05P-163-0307871-00

PATIENT
  Age: 44 Year
  Sex: Male
  Weight: 96.6162 kg

DRUGS (6)
  1. HUMIRA [Suspect]
     Indication: RHEUMATOID ARTHRITIS
     Dosage: 40 MG, 1 IN 2 WK, SUBCUTANEOUS
     Route: 058
     Dates: start: 20040401, end: 20050601
  2. METHOTREXATE [Concomitant]
  3. FOLIC ACID [Concomitant]
  4. PREDNISONE [Concomitant]
  5. CALCIUM CITRATE [Concomitant]
  6. RISEDRONATE SODIUM [Concomitant]

REACTIONS (5)
  - BLOOD PRESSURE DECREASED [None]
  - HEART RATE INCREASED [None]
  - LYMPH GLAND INFECTION [None]
  - PLATELET COUNT INCREASED [None]
  - PYREXIA [None]
